FAERS Safety Report 5850495-1 (Version None)
Quarter: 2008Q3

REPORT INFORMATION
  Report Type: 
  Country: None (occurrence: None)
  Receive Date: 20080819
  Receipt Date: 20080807
  Transmission Date: 20090109
  Serious: Yes (Other)
  Sender: FDA-Public Use
  Company Number: US-PFIZER INC-2008066758

PATIENT
  Sex: Female
  Weight: 138.63 kg

DRUGS (1)
  1. LYRICA [Suspect]
     Indication: SCIATICA
     Route: 048

REACTIONS (7)
  - ANXIETY [None]
  - BIPOLAR DISORDER [None]
  - BLOOD CHOLESTEROL INCREASED [None]
  - DEPRESSION [None]
  - HYPERSENSITIVITY [None]
  - NIGHTMARE [None]
  - SLEEP DISORDER [None]
